FAERS Safety Report 10101381 (Version 1)
Quarter: 2014Q2

REPORT INFORMATION
  Report Type: Spontaneous
  Country: US (occurrence: None)
  Receive Date: 20140422
  Receipt Date: 20140422
  Transmission Date: 20141212
  Serious: Yes (Life-Threatening, Other)
  Sender: FDA-Public Use
  Company Number: 001711608A

PATIENT
  Age: 12 Year
  Sex: Female

DRUGS (4)
  1. PROACTIV + SKIN SMOOTHING EXFOLIATOR [Suspect]
     Indication: ACNE
     Dosage: ONCE DAILY DERMAL
     Dates: start: 20140326, end: 20140327
  2. PROACTIV + PORE TARGETING TREATMENT [Suspect]
     Indication: ACNE
     Dosage: ONCE DAILY DERMAL
     Dates: start: 20140326, end: 20140327
  3. PROACTIV + COMPLEXION PERFECTING HYDRATOR [Suspect]
     Indication: ACNE
     Dosage: ONCE DAILY DERMAL
     Dates: start: 20140326, end: 20140327
  4. PROACTIV + PURIFYING MASK [Suspect]
     Indication: ACNE
     Dosage: ONCE DAILY DERMAL
     Dates: start: 20140326, end: 20140327

REACTIONS (7)
  - Hypersensitivity [None]
  - Swelling face [None]
  - Eye swelling [None]
  - Throat tightness [None]
  - Dyspnoea [None]
  - Erythema [None]
  - Pruritus [None]
